FAERS Safety Report 5889707-7 (Version None)
Quarter: 2008Q3

REPORT INFORMATION
  Report Type: 
  Country: None (occurrence: None)
  Receive Date: 20080919
  Receipt Date: 20080912
  Transmission Date: 20090109
  Serious: Yes (Other)
  Sender: FDA-Public Use
  Company Number: JP-JNJFOC-20080802074

PATIENT
  Age: 38 Year
  Sex: Female

DRUGS (8)
  1. RISPERDAL [Suspect]
     Indication: DRUG USE FOR UNKNOWN INDICATION
     Route: 048
  2. RISPERDAL [Suspect]
     Route: 048
  3. LEXIN [Suspect]
     Indication: DRUG USE FOR UNKNOWN INDICATION
     Route: 048
  4. BIPERIDEN HYDROCHLORIDE TAB [Concomitant]
     Route: 048
  5. SHINLUCK [Concomitant]
     Route: 048
  6. NULOTAN [Concomitant]
     Route: 048
  7. PALGIN [Concomitant]
     Route: 048
  8. CHLORPROMAZINE HCL [Concomitant]
     Route: 048

REACTIONS (2)
  - PSYCHIATRIC SYMPTOM [None]
  - WHITE BLOOD CELL COUNT DECREASED [None]
